FAERS Safety Report 7016512-0 (Version None)
Quarter: 2010Q3

REPORT INFORMATION
  Report Type: 
  Country: None (occurrence: None)
  Receive Date: 20100927
  Receipt Date: 20100922
  Transmission Date: 20110219
  Serious: Yes (Hospitalization)
  Sender: FDA-Public Use
  Company Number: A0815632A

PATIENT
  Age: 66 Year
  Sex: Male
  Weight: 127 kg

DRUGS (6)
  1. AVANDIA [Suspect]
     Indication: DIABETES MELLITUS
     Dosage: 8MG PER DAY
     Route: 048
     Dates: end: 20070101
  2. GLYBURIDE [Concomitant]
  3. METFORMIN [Concomitant]
  4. METOPROLOL TARTRATE [Concomitant]
  5. LISINOPRIL [Concomitant]
  6. TRICOR [Concomitant]

REACTIONS (5)
  - CARDIAC ARREST [None]
  - CARDIAC FAILURE CONGESTIVE [None]
  - CARDIOMYOPATHY [None]
  - CARDIOVASCULAR DISORDER [None]
  - MYOCARDIAL INFARCTION [None]
